FAERS Safety Report 13838792 (Version 2)
Quarter: 2017Q4

REPORT INFORMATION
  Report Type: Spontaneous
  Country: US (occurrence: US)
  Receive Date: 20170807
  Receipt Date: 20171031
  Transmission Date: 20180320
  Serious: Yes (Other)
  Sender: FDA-Public Use
  Company Number: US-PFIZER INC-2017336691

PATIENT
  Age: 68 Year
  Sex: Female
  Weight: 91 kg

DRUGS (1)
  1. XELJANZ [Suspect]
     Active Substance: TOFACITINIB CITRATE
     Indication: RHEUMATOID ARTHRITIS
     Dosage: 5 MG, 2X/DAY
     Route: 048

REACTIONS (10)
  - Fall [Unknown]
  - Rib fracture [Unknown]
  - Hordeolum [Unknown]
  - Limb discomfort [Unknown]
  - Tooth disorder [Unknown]
  - Tooth abscess [Unknown]
  - Acne [Unknown]
  - Mouth injury [Unknown]
  - Tooth infection [Unknown]
  - Infection [Unknown]
